FAERS Safety Report 14676239 (Version 4)
Quarter: 2018Q3

REPORT INFORMATION
  Report Type: Report from Study
  Country: US (occurrence: US)
  Receive Date: 20180323
  Receipt Date: 20180817
  Transmission Date: 20181010
  Serious: Yes (Hospitalization)
  Sender: FDA-Public Use
  Company Number: US-EXELIXIS-CABO-18012667

PATIENT
  Sex: Male
  Weight: 72.88 kg

DRUGS (22)
  1. PRILOSEC [Concomitant]
     Active Substance: OMEPRAZOLE MAGNESIUM
  2. METOPROLOL. [Concomitant]
     Active Substance: METOPROLOL
  3. MAGNESIUM OXIDE. [Concomitant]
     Active Substance: MAGNESIUM OXIDE
  4. NUPERCAINAL [Concomitant]
     Active Substance: DIBUCAINE
  5. ONDANSETRON [Concomitant]
     Active Substance: ONDANSETRON
  6. ATORVASTATIN CALCIUM. [Concomitant]
     Active Substance: ATORVASTATIN CALCIUM
  7. SYNTHROID [Concomitant]
     Active Substance: LEVOTHYROXINE SODIUM
  8. PROAIR HFA [Concomitant]
     Active Substance: ALBUTEROL SULFATE
  9. AMPICILLIN [Concomitant]
     Active Substance: AMPICILLIN
  10. CABOMETYX [Suspect]
     Active Substance: CABOZANTINIB S-MALATE
     Indication: BONE CANCER
     Dosage: 20 MG, QD
     Route: 048
     Dates: start: 20180314
  11. CABOMETYX [Suspect]
     Active Substance: CABOZANTINIB S-MALATE
     Dosage: 60 MG, QD
     Route: 048
     Dates: start: 201805, end: 20180716
  12. TYLENOL [Concomitant]
     Active Substance: ACETAMINOPHEN
  13. VELTASSA [Concomitant]
     Active Substance: PATIROMER
  14. CABOMETYX [Suspect]
     Active Substance: CABOZANTINIB S-MALATE
     Indication: RENAL CANCER
     Dosage: 60 MG, QD
     Route: 048
     Dates: start: 20171208, end: 201802
  15. IMODIUM [Concomitant]
     Active Substance: LOPERAMIDE HYDROCHLORIDE
  16. XGEVA [Concomitant]
     Active Substance: DENOSUMAB
  17. CALCIUM [Concomitant]
     Active Substance: CALCIUM
  18. ASA [Concomitant]
     Active Substance: ASPIRIN
  19. CABOMETYX [Suspect]
     Active Substance: CABOZANTINIB S-MALATE
     Dosage: UNK
     Dates: start: 20180727
  20. HYDROCORTISONE. [Concomitant]
     Active Substance: HYDROCORTISONE
  21. AMLODIPINE [Concomitant]
     Active Substance: AMLODIPINE BESYLATE
  22. BENADRYL [Concomitant]
     Active Substance: DIPHENHYDRAMINE HYDROCHLORIDE

REACTIONS (14)
  - Mental status changes [Recovering/Resolving]
  - Gastrointestinal infection [Recovering/Resolving]
  - Stomatitis [Recovering/Resolving]
  - Urinary retention [Recovered/Resolved]
  - Nausea [Recovered/Resolved]
  - Conjunctivitis [Recovered/Resolved]
  - Metabolic acidosis [Recovered/Resolved]
  - Blood potassium increased [Recovering/Resolving]
  - Skin exfoliation [Recovering/Resolving]
  - Vomiting [Recovered/Resolved]
  - Acute kidney injury [Recovered/Resolved]
  - Pain in extremity [Recovering/Resolving]
  - Adrenal insufficiency [Recovering/Resolving]
  - Diarrhoea [Recovering/Resolving]
